FAERS Safety Report 5922805-8 (Version None)
Quarter: 2008Q4

REPORT INFORMATION
  Report Type: 
  Country: None (occurrence: None)
  Receive Date: 20081017
  Receipt Date: 20081017
  Transmission Date: 20090506
  Serious: Yes (Life-Threatening, Hospitalization, Disabling)
  Sender: FDA-Public Use
  Company Number: JP-B.I. PHARMACEUTICALS,INC./RIDGEFIELD-2008-BP-10428NB

PATIENT
  Sex: Male
  Weight: 86 kg

DRUGS (4)
  1. MICARDIS [Suspect]
     Indication: HYPERTENSION
     Dosage: 40MG
     Route: 048
     Dates: start: 20060519
  2. ADALAT CC [Concomitant]
     Indication: HYPERTENSION
     Dosage: 40MG
     Route: 048
     Dates: start: 20060927
  3. LIPIDIL [Concomitant]
     Indication: HYPERTRIGLYCERIDAEMIA
     Dosage: 200MG
     Route: 048
     Dates: start: 20060519
  4. LIPIDIL [Concomitant]
     Indication: HYPERURICAEMIA

REACTIONS (2)
  - ATRIOVENTRICULAR BLOCK COMPLETE [None]
  - CARDIAC FAILURE [None]
